FAERS Safety Report 5557938-1 (Version None)
Quarter: 2007Q4

REPORT INFORMATION
  Report Type: 
  Country: None (occurrence: None)
  Receive Date: 20071214
  Receipt Date: 20071203
  Transmission Date: 20080405
  Serious: Yes (Hospitalization)
  Sender: FDA-Public Use
  Company Number: FR-ROCHE-534862

PATIENT
  Age: 70 Year
  Sex: Female

DRUGS (7)
  1. RIVOTRIL [Suspect]
     Indication: INSOMNIA
     Dosage: DOSAGE: 35GBQ.
     Route: 048
     Dates: start: 20070801, end: 20070820
  2. TERALITHE [Suspect]
     Indication: DRUG USE FOR UNKNOWN INDICATION
     Dosage: DRUG TERALITHE LP
     Route: 048
  3. TERALITHE [Suspect]
     Dosage: DOSE: 3.5 DOSE FORMS
     Route: 048
  4. TERALITHE [Suspect]
     Dosage: DOSE: 2 DOSE FORMS
     Route: 048
  5. NOCTRAN [Suspect]
     Indication: INSOMNIA
     Dosage: DOSE: 1 DOSE
     Route: 048
     Dates: start: 20070801, end: 20070820
  6. STILNOX [Suspect]
     Indication: INSOMNIA
     Dosage: DOSE: 1 DOSE
     Route: 048
     Dates: start: 20070801, end: 20070814
  7. SERESTA [Suspect]
     Indication: INSOMNIA
     Dosage: DOSE: 1 DOSE
     Route: 048
     Dates: start: 20070801, end: 20070908

REACTIONS (3)
  - FALL [None]
  - HAEMATOMA [None]
  - OEDEMA [None]
